FAERS Safety Report 4640317-9 (Version None)
Quarter: 2005Q2

REPORT INFORMATION
  Report Type: 
  Country: None (occurrence: None)
  Receive Date: 20050420
  Receipt Date: 20041022
  Transmission Date: 20051028
  Serious: No
  Sender: FDA-Public Use
  Company Number: US-GLAXOSMITHKLINE-A0530910A

PATIENT
  Age: 63 Year
  Sex: Female

DRUGS (6)
  1. ESKALITH [Suspect]
     Dosage: 600MG TWICE PER DAY
     Route: 048
  2. GLUCOPHAGE [Concomitant]
  3. LISINOPRIL [Concomitant]
     Route: 065
  4. LEVOTHYROXINE SODIUM [Concomitant]
     Route: 065
  5. ASPIRIN [Concomitant]
  6. MULTI-VITAMINS [Concomitant]

REACTIONS (1)
  - TREMOR [None]
